FAERS Safety Report 17848504 (Version 1)
Quarter: 2020Q2

REPORT INFORMATION
  Report Type: Spontaneous
  Country: GB (occurrence: GB)
  Receive Date: 20200602
  Receipt Date: 20200602
  Transmission Date: 20200714
  Serious: Yes (Hospitalization, Other)
  Sender: FDA-Public Use
  Company Number: GB-VISTAPHARM, INC.-VER202005-001047

PATIENT
  Age: 30 Year
  Sex: Female

DRUGS (7)
  1. PREDNISOLONE. [Suspect]
     Active Substance: PREDNISOLONE
     Indication: NECROTISING MYOSITIS
     Dosage: 20 MG (AT 7-WEEK GESTATION)
     Route: 048
  2. METHYLPREDNISOLONE. [Suspect]
     Active Substance: METHYLPREDNISOLONE
     Indication: NECROTISING MYOSITIS
     Dosage: 1 G FOR 3 DAYS (AT 16-WEEK GESTATION)
     Route: 042
  3. RITUXIMAB. [Suspect]
     Active Substance: RITUXIMAB
     Indication: ANTI-SRP ANTIBODY POSITIVE
     Dosage: 1 G EVERY 6 MONTHS
  4. PREDNISOLONE. [Suspect]
     Active Substance: PREDNISOLONE
     Dosage: 30 MG DAILY (AT 16-WEEK GESTATION)
     Route: 048
  5. METHYLPREDNISOLONE. [Suspect]
     Active Substance: METHYLPREDNISOLONE
     Indication: ANTI-SRP ANTIBODY POSITIVE
     Dosage: UNKNOWN (HIGH DOSE)
     Route: 042
  6. PREDNISOLONE. [Suspect]
     Active Substance: PREDNISOLONE
     Indication: ANTI-SRP ANTIBODY POSITIVE
     Dosage: 15 MG DAILY
     Route: 048
  7. RITUXIMAB. [Suspect]
     Active Substance: RITUXIMAB
     Indication: NECROTISING MYOSITIS
     Dosage: 1 G (AT 16-WEEK GESTATION)

REACTIONS (4)
  - Haemorrhage in pregnancy [Recovered/Resolved]
  - Placenta praevia [Recovered/Resolved]
  - Exposure during pregnancy [Unknown]
  - Oligohydramnios [Recovered/Resolved]
